FAERS Safety Report 15406427 (Version 1)
Quarter: 2018Q3

REPORT INFORMATION
  Report Type: Spontaneous
  Country: BR (occurrence: BR)
  Receive Date: 20180920
  Receipt Date: 20180920
  Transmission Date: 20181010
  Serious: Yes (Other)
  Sender: FDA-Public Use
  Company Number: BR-009507513-1601BRA002603

PATIENT
  Age: 85 Year
  Sex: Female
  Weight: 68 kg

DRUGS (7)
  1. CYMBALTA [Concomitant]
     Active Substance: DULOXETINE HYDROCHLORIDE
     Indication: DEPRESSION
     Dosage: 30 MG, UNK
     Dates: start: 2009
  2. COZAAR [Suspect]
     Active Substance: LOSARTAN POTASSIUM
     Indication: CARDIOVASCULAR EVENT PROPHYLAXIS
     Dosage: 50 MG, HALF TABLET, BID
     Route: 048
     Dates: start: 201510
  3. ARIMIDEX [Suspect]
     Active Substance: ANASTROZOLE
     Indication: BREAST CANCER
     Dosage: UNK
     Dates: start: 201501
  4. ANASTROZOLE. [Concomitant]
     Active Substance: ANASTROZOLE
     Indication: BREAST CANCER
     Dosage: UNK
     Dates: start: 201409, end: 201501
  5. ANASTROZOLE. [Concomitant]
     Active Substance: ANASTROZOLE
     Dosage: UNK
  6. AVAMYS [Concomitant]
     Active Substance: FLUTICASONE FUROATE
     Indication: ASTHMA
     Dosage: UNK
     Dates: start: 2009
  7. COZAAR [Suspect]
     Active Substance: LOSARTAN POTASSIUM
     Indication: HYPERTENSION
     Dosage: 50 MG, HALF TABLET, QD
     Route: 048
     Dates: start: 2013, end: 201510

REACTIONS (10)
  - Cardiac failure congestive [Unknown]
  - Dizziness [Recovered/Resolved]
  - Metabolic disorder [Unknown]
  - Wrong technique in product usage process [Unknown]
  - Bronchitis [Unknown]
  - Hyperhidrosis [Recovered/Resolved]
  - Blood pressure decreased [Recovered/Resolved]
  - Myocardial infarction [Unknown]
  - Asthma [Unknown]
  - Emphysema [Unknown]

NARRATIVE: CASE EVENT DATE: 2013
